FAERS Safety Report 8586210 (Version 2)
Quarter: 2013Q2

REPORT INFORMATION
  Report Type: Spontaneous
  Country: US (occurrence: US)
  Receive Date: 20120530
  Receipt Date: 20130530
  Transmission Date: 20140414
  Serious: No
  Sender: FDA-Public Use
  Company Number: US-GLAXOSMITHKLINE-A0968982A

PATIENT
  Age: 66 Year
  Sex: Female

DRUGS (2)
  1. VENTOLIN [Suspect]
     Indication: BRONCHITIS
     Dosage: 2SPR FOUR TIMES PER DAY
     Route: 055
     Dates: start: 20120128
  2. ANTIBIOTIC [Concomitant]

REACTIONS (4)
  - Dyspnoea [Recovering/Resolving]
  - Choking sensation [Unknown]
  - Ill-defined disorder [Unknown]
  - Product quality issue [Unknown]
